FAERS Safety Report 6779164-0 (Version None)
Quarter: 2010Q2

REPORT INFORMATION
  Report Type: 
  Country: None (occurrence: None)
  Receive Date: 20100618
  Receipt Date: 20100611
  Transmission Date: 20101027
  Serious: Yes (Hospitalization)
  Sender: FDA-Public Use
  Company Number: ES-ASTRAZENECA-2010SE27884

PATIENT
  Age: 84 Year
  Sex: Male

DRUGS (6)
  1. TENORETIC 100 [Suspect]
     Indication: HYPERTENSION
     Dosage: 100 MG/25MG, 1 DF DAILY
     Route: 048
     Dates: start: 20090101, end: 20100325
  2. DIOVAN [Suspect]
     Indication: HYPERTENSION
     Route: 048
     Dates: start: 20090101, end: 20100325
  3. ENALAPRIL MALEATE [Suspect]
     Indication: HYPERTENSION
     Route: 048
     Dates: start: 20090101, end: 20100325
  4. DILTIAZEM [Concomitant]
     Indication: HYPERTENSION
     Dates: start: 20100325
  5. PROSCAR [Concomitant]
     Indication: BENIGN PROSTATIC HYPERPLASIA
  6. ZYLORIC [Concomitant]
     Indication: GOUT
     Dates: start: 20100325

REACTIONS (1)
  - RENAL FAILURE ACUTE [None]
